FAERS Safety Report 16518044 (Version 1)
Quarter: 2019Q3

REPORT INFORMATION
  Report Type: Spontaneous
  Country: ES (occurrence: ES)
  Receive Date: 20190702
  Receipt Date: 20190702
  Transmission Date: 20191004
  Serious: Yes (Other)
  Sender: FDA-Public Use
  Company Number: ES-ASTRAZENECA-2019SE92595

PATIENT
  Age: 55 Year
  Sex: Male

DRUGS (5)
  1. ATORVASTATIN [Concomitant]
     Active Substance: ATORVASTATIN
     Route: 048
  2. HIDROSALURETIL [Concomitant]
     Active Substance: HYDROCHLOROTHIAZIDE
     Route: 048
  3. XIGDUO XR [Suspect]
     Active Substance: DAPAGLIFLOZIN PROPANEDIOL\METFORMIN HYDROCHLORIDE
     Indication: DIABETES MELLITUS
     Dosage: 5 MG/1000 MG
     Route: 048
     Dates: start: 20171212, end: 20190610
  4. CARDURAN NEO [Concomitant]
     Active Substance: DOXAZOSIN MESYLATE
     Route: 048
  5. TOUJEO [Concomitant]
     Active Substance: INSULIN GLARGINE
     Dosage: 300 UNITS/ML
     Route: 058

REACTIONS (1)
  - Perineal abscess [Unknown]

NARRATIVE: CASE EVENT DATE: 20190527
